FAERS Safety Report 16358577 (Version 1)
Quarter: 2019Q2

REPORT INFORMATION
  Report Type: Spontaneous
  Country: ES (occurrence: ES)
  Receive Date: 20190527
  Receipt Date: 20190527
  Transmission Date: 20190711
  Serious: Yes (Other)
  Sender: FDA-Public Use
  Company Number: ES-ALLERGAN-1922021US

PATIENT
  Sex: Female

DRUGS (2)
  1. URSODEOXYCHOLIC ACID UNK [Suspect]
     Active Substance: URSODIOL
     Indication: PRIMARY BILIARY CHOLANGITIS
     Dosage: 13-16 MG/KG/DAY
     Route: 065
  2. BEZAFIBRATE UNK [Suspect]
     Active Substance: BEZAFIBRATE
     Indication: PRIMARY BILIARY CHOLANGITIS
     Dosage: 400 MG, QD
     Route: 065

REACTIONS (1)
  - Hepatocellular carcinoma [Unknown]
